FAERS Safety Report 15658196 (Version 1)
Quarter: 2018Q4

REPORT INFORMATION
  Report Type: Spontaneous
  Country: NO (occurrence: NO)
  Receive Date: 20181126
  Receipt Date: 20181126
  Transmission Date: 20190205
  Serious: Yes (Life-Threatening, Hospitalization, Disabling)
  Sender: FDA-Public Use
  Company Number: NO-OTSUKA-2018_036837

PATIENT
  Age: 44 Year
  Sex: Female
  Weight: 65 kg

DRUGS (2)
  1. ABILIFY [Suspect]
     Active Substance: ARIPIPRAZOLE
     Dosage: UNK
     Route: 065
  2. ABILIFY [Suspect]
     Active Substance: ARIPIPRAZOLE
     Indication: PRODUCT USED FOR UNKNOWN INDICATION
     Dosage: 10 MG, QD
     Route: 048
     Dates: start: 20010201, end: 20150415

REACTIONS (12)
  - Haemangioma [Recovered/Resolved with Sequelae]
  - Restlessness [Recovered/Resolved with Sequelae]
  - Motor dysfunction [Recovered/Resolved with Sequelae]
  - Muscle twitching [Recovered/Resolved with Sequelae]
  - Fluid retention [Unknown]
  - Disturbance in attention [Recovered/Resolved with Sequelae]
  - Blood glucose increased [Recovered/Resolved with Sequelae]
  - Paraesthesia [Recovered/Resolved with Sequelae]
  - Rhinorrhoea [Recovered/Resolved with Sequelae]
  - Dysgeusia [Recovered/Resolved with Sequelae]
  - Obesity [Unknown]
  - Muscle spasms [Recovered/Resolved with Sequelae]

NARRATIVE: CASE EVENT DATE: 20010415
